FAERS Safety Report 4877567-2 (Version None)
Quarter: 2006Q1

REPORT INFORMATION
  Report Type: 
  Country: None (occurrence: None)
  Receive Date: 20060111
  Receipt Date: 20060102
  Transmission Date: 20060701
  Serious: Yes (Hospitalization)
  Sender: FDA-Public Use
  Company Number: FR-GLAXOSMITHKLINE-B0404997A

PATIENT
  Age: 51 Year
  Sex: Female
  Weight: 70 kg

DRUGS (8)
  1. ULTIVA [Suspect]
     Route: 042
     Dates: start: 20051207, end: 20051207
  2. ZOPHREN [Suspect]
     Indication: DRUG USE FOR UNKNOWN INDICATION
     Dosage: 4MG PER DAY
     Route: 042
     Dates: start: 20051207, end: 20051207
  3. TRACRIUM [Suspect]
     Route: 042
     Dates: start: 20051207, end: 20051207
  4. ACUPAN [Suspect]
     Dosage: 20MG PER DAY
     Route: 042
     Dates: start: 20051207, end: 20051207
  5. MORPHINE [Suspect]
     Dosage: 7MG PER DAY
     Route: 042
     Dates: start: 20051207, end: 20051207
  6. BLEU PATENTE [Suspect]
     Route: 065
     Dates: start: 20051207, end: 20051207
  7. PERFALGAN [Suspect]
     Route: 042
     Dates: start: 20051207, end: 20051207
  8. DIPRIVAN [Concomitant]
     Route: 042
     Dates: start: 20051207, end: 20051207

REACTIONS (4)
  - EYELID OEDEMA [None]
  - FACE OEDEMA [None]
  - LARYNGEAL OEDEMA [None]
  - URTICARIA [None]
